FAERS Safety Report 7380598-4 (Version None)
Quarter: 2011Q1

REPORT INFORMATION
  Report Type: 
  Country: None (occurrence: None)
  Receive Date: 20110329
  Receipt Date: 20110317
  Transmission Date: 20110831
  Serious: Yes (Other)
  Sender: FDA-Public Use
  Company Number: US-ACTELION-A-US2011-46451

PATIENT

DRUGS (2)
  1. TRACLEER [Suspect]
     Indication: PULMONARY ARTERIAL HYPERTENSION
     Dosage: UNK
     Route: 048
     Dates: start: 20090721
  2. REVATIO [Concomitant]

REACTIONS (4)
  - COUGH [None]
  - CAUTERY TO NOSE [None]
  - EPISTAXIS [None]
  - DIZZINESS [None]
